FAERS Safety Report 5144428-3 (Version None)
Quarter: 2006Q4

REPORT INFORMATION
  Report Type: 
  Country: None (occurrence: None)
  Receive Date: 20061031
  Receipt Date: 20061019
  Transmission Date: 20070319
  Serious: Yes (Other)
  Sender: FDA-Public Use
  Company Number: 2006127945

PATIENT
  Sex: Male

DRUGS (4)
  1. CARDURA [Suspect]
     Indication: CARDIAC DISORDER
     Dosage: 8 MG (8 MG, 1 IN 1 D), ORAL
     Route: 048
  2. CARDURA [Suspect]
     Indication: HYPERTENSION
     Dosage: 8 MG (8 MG, 1 IN 1 D), ORAL
     Route: 048
  3. TOPROL-XL [Suspect]
     Indication: CARDIAC DISORDER
     Dosage: 100 MEQ (100 MG, 1 IN 1), ORAL
     Route: 048
     Dates: end: 20061009
  4. TOPROL-XL [Suspect]
     Indication: HYPERTENSION
     Dosage: 100 MEQ (100 MG, 1 IN 1), ORAL
     Route: 048
     Dates: end: 20061009

REACTIONS (3)
  - CONDITION AGGRAVATED [None]
  - HEART RATE DECREASED [None]
  - HYPERTENSION [None]
